FAERS Safety Report 9329552 (Version 1)
Quarter: 2013Q2

REPORT INFORMATION
  Report Type: Spontaneous
  Country: US (occurrence: US)
  Receive Date: 20130604
  Receipt Date: 20130604
  Transmission Date: 20140414
  Serious: No
  Sender: FDA-Public Use
  Company Number: US-SANOFI-AVENTIS-2012SA088053

PATIENT
  Sex: Female

DRUGS (4)
  1. LANTUS SOLOSTAR [Suspect]
     Dosage: DOSE:45 UNIT(S)
     Route: 058
  2. SOLOSTAR [Suspect]
  3. PREDNISONE [Suspect]
     Route: 065
     Dates: start: 201210, end: 201210
  4. HUMALOG [Concomitant]
     Dosage: SLIDING SCALE

REACTIONS (2)
  - Dizziness [Recovered/Resolved]
  - Hyperglycaemia [Recovered/Resolved]
